FAERS Safety Report 8761776 (Version 4)
Quarter: 2013Q2

REPORT INFORMATION
  Report Type: Spontaneous
  Country: GB (occurrence: None)
  Receive Date: 20120823
  Receipt Date: 20130517
  Transmission Date: 20140414
  Serious: Yes (Life-Threatening, Hospitalization, Disabling)
  Sender: FDA-Public Use
  Company Number: GER/UKI/12/0025507

PATIENT
  Age: 47 Year
  Sex: Male

DRUGS (10)
  1. GEMCITABINE (GEMCITABINE) [Suspect]
     Indication: PANCREATIC CARCINOMA
     Dosage: CYCLICAL
     Route: 042
     Dates: start: 20120525
  2. IMM-101 [Suspect]
     Indication: PANCREATIC CARCINOMA
     Dosage: CYCLICAL
     Route: 023
     Dates: start: 20120525, end: 20120621
  3. OMEPRAZOLE (OMEPRAZOLE) [Concomitant]
  4. BISACODYL (BISACODYL) [Concomitant]
  5. AUGMENTIN (AUGMENTIN /00756801/) [Concomitant]
  6. METOCLOPRAMIDE (METOCLOPRAMIDE) [Concomitant]
  7. MST CONTINUS (MORPHINE SULFATE) [Concomitant]
  8. ORAMORPH (MORPHINE SULFATE) [Concomitant]
  9. BUSCOPAN (HYOSCINE BUTYLBROMIDE) [Concomitant]
  10. DOCUSATE (DOCUSATE) [Concomitant]

REACTIONS (9)
  - Cerebellar infarction [None]
  - Malaise [None]
  - Dizziness [None]
  - Vomiting [None]
  - Urinary tract infection [None]
  - Haemoglobin decreased [None]
  - Red blood cell count decreased [None]
  - Blood alkaline phosphatase increased [None]
  - Blood creatinine increased [None]
